FAERS Safety Report 16908155 (Version 1)
Quarter: 2019Q4

REPORT INFORMATION
  Report Type: Spontaneous
  Country: US (occurrence: US)
  Receive Date: 20191010
  Receipt Date: 20191010
  Transmission Date: 20200122
  Serious: Yes (Life-Threatening, Hospitalization, Disabling, Congenital Anomaly)
  Sender: FDA-Public Use
  Company Number: None

PATIENT
  Age: 55 Year
  Sex: Male
  Weight: 112.5 kg

DRUGS (6)
  1. IMMODIUM (GENERIC) [Concomitant]
  2. CHOLESTYRAMINE FOR ORAL SUSPENSION, USP [Suspect]
     Active Substance: CHOLESTYRAMINE
     Indication: DIARRHOEA
     Dosage: ?          QUANTITY:1 PACKET;?
     Route: 048
     Dates: start: 20190423, end: 20190426
  3. MULTI VITAMIN [Concomitant]
     Active Substance: VITAMINS
  4. CPAP [Concomitant]
     Active Substance: DEVICE
  5. ASPIRIN 81MG [Concomitant]
     Active Substance: ASPIRIN
  6. VITAMIN C [Concomitant]
     Active Substance: ASCORBIC ACID

REACTIONS (2)
  - Pancreatitis necrotising [None]
  - Obstructive pancreatitis [None]

NARRATIVE: CASE EVENT DATE: 20190427
